FAERS Safety Report 23367877 (Version 3)
Quarter: 2024Q2

REPORT INFORMATION
  Report Type: Report from Study
  Country: GB (occurrence: GB)
  Receive Date: 20240104
  Receipt Date: 20240405
  Transmission Date: 20240716
  Serious: Yes (Hospitalization)
  Sender: FDA-Public Use
  Company Number: GB-PHARMAMAR-2023PM000947

PATIENT
  Age: 69 Year
  Sex: Female
  Weight: 79.7 kg

DRUGS (12)
  1. LURBINECTEDIN [Suspect]
     Active Substance: LURBINECTEDIN
     Indication: Small cell lung cancer
     Dosage: 2 MILLIGRAM/SQ. METER, D1Q3W
     Route: 042
     Dates: start: 20230925, end: 20231129
  2. IRINOTECAN [Suspect]
     Active Substance: IRINOTECAN
     Indication: Small cell lung cancer
     Dosage: 75 MILLIGRAM/SQ. METER, D1D8Q3W
     Route: 042
     Dates: start: 20230925, end: 20231206
  3. DEXAMETHASONE [Concomitant]
     Active Substance: DEXAMETHASONE
     Indication: Prophylaxis of nausea and vomiting
     Dosage: 8 MILLIGRAM
     Route: 042
     Dates: start: 20231129, end: 20231206
  4. FILGRASTIM [Concomitant]
     Active Substance: FILGRASTIM
     Dosage: 480 MILLIGRAM
     Route: 058
     Dates: start: 20231129, end: 20231203
  5. ONDANSETRON [Concomitant]
     Active Substance: ONDANSETRON
     Indication: Prophylaxis of nausea and vomiting
     Dosage: 8 MILLIGRAM
     Route: 042
     Dates: start: 20231129, end: 20231206
  6. LANSOPRAZOLE [Concomitant]
     Active Substance: LANSOPRAZOLE
     Dosage: UNK
     Dates: start: 20170425
  7. ALBUTEROL [Concomitant]
     Active Substance: ALBUTEROL
     Indication: Chronic obstructive pulmonary disease
     Dosage: UNK
     Dates: start: 20190116
  8. BECLOMETHASONE DIPROPIONATE\FORMOTEROL FUMARATE [Concomitant]
     Active Substance: BECLOMETHASONE DIPROPIONATE\FORMOTEROL FUMARATE
     Indication: Chronic obstructive pulmonary disease
     Dosage: 8859 MICROGRAM, BID
     Dates: start: 20220707
  9. IBUPROFEN [Concomitant]
     Active Substance: IBUPROFEN
     Indication: Back pain
     Dosage: 400 MILLIGRAM, TID
     Route: 048
     Dates: start: 20230721
  10. ACETAMINOPHEN [Concomitant]
     Active Substance: ACETAMINOPHEN
     Indication: Back pain
     Dosage: 1 GRAM
     Route: 048
     Dates: start: 20230721
  11. LOPERAMIDE [Concomitant]
     Active Substance: LOPERAMIDE
     Indication: Diarrhoea
     Dosage: 2 MILLIGRAM, PRN
     Route: 048
     Dates: start: 20231002
  12. NICOTINE [Concomitant]
     Active Substance: NICOTINE
     Indication: Ex-tobacco user
     Dosage: 2 MILLIGRAM, PRN
     Route: 048
     Dates: start: 202312

REACTIONS (1)
  - Muscular weakness [Recovered/Resolved]

NARRATIVE: CASE EVENT DATE: 20231213
